FAERS Safety Report 25711985 (Version 1)
Quarter: 2025Q3

REPORT INFORMATION
  Report Type: Spontaneous
  Country: US (occurrence: US)
  Receive Date: 20250821
  Receipt Date: 20250821
  Transmission Date: 20251020
  Serious: Yes (Other)
  Sender: PFIZER
  Company Number: US-PFIZER INC-202500166264

PATIENT
  Age: 52 Year
  Sex: Female

DRUGS (10)
  1. METHYLPREDNISOLONE SODIUM SUCCINATE [Suspect]
     Active Substance: METHYLPREDNISOLONE SODIUM SUCCINATE
     Indication: Asthma
     Dosage: 50 MG, 4X/DAY
     Route: 042
  2. METHYLPREDNISOLONE SODIUM SUCCINATE [Suspect]
     Active Substance: METHYLPREDNISOLONE SODIUM SUCCINATE
     Indication: Asthmatic crisis
  3. AMINOPHYLLINE [Suspect]
     Active Substance: AMINOPHYLLINE
     Indication: Asthma
     Route: 042
  4. AMINOPHYLLINE [Suspect]
     Active Substance: AMINOPHYLLINE
     Indication: Asthmatic crisis
  5. METOCURINE IODIDE [Suspect]
     Active Substance: METOCURINE IODIDE
     Indication: Asthma
     Route: 042
  6. METOCURINE IODIDE [Suspect]
     Active Substance: METOCURINE IODIDE
     Indication: Asthmatic crisis
  7. TERBUTALINE [Concomitant]
     Active Substance: TERBUTALINE
     Indication: Asthma
     Route: 042
  8. TERBUTALINE [Concomitant]
     Active Substance: TERBUTALINE
     Indication: Asthmatic crisis
  9. FENTANYL [Concomitant]
     Active Substance: FENTANYL
     Indication: Asthma
  10. FENTANYL [Concomitant]
     Active Substance: FENTANYL
     Indication: Asthmatic crisis

REACTIONS (1)
  - Myopathy [Recovering/Resolving]
